FAERS Safety Report 9701728 (Version 2)
Quarter: 2013Q4

REPORT INFORMATION
  Report Type: Spontaneous
  Country: US (occurrence: US)
  Receive Date: 20131119
  Receipt Date: 20131119
  Transmission Date: 20140711
  Serious: Yes (Other)
  Sender: FDA-Public Use
  Company Number: US-SAVIENT-2012S1000108

PATIENT
  Age: 35 Year
  Sex: Male
  Weight: 102.06 kg

DRUGS (19)
  1. KRYSTEXXA [Suspect]
     Indication: GOUT
     Route: 042
     Dates: start: 20120924, end: 20120924
  2. KRYSTEXXA [Suspect]
     Indication: GOUT
     Route: 042
     Dates: start: 20121012, end: 20121012
  3. KRYSTEXXA [Suspect]
     Indication: GOUT
     Route: 042
     Dates: start: 20121022, end: 20121022
  4. NORVASC [Concomitant]
     Indication: HYPERTENSION
  5. LIPITOR [Concomitant]
     Indication: CORONARY ARTERY DISEASE
  6. HYDROCODONE [Concomitant]
     Indication: PAIN
  7. BENADRYL /00945501/ [Concomitant]
     Indication: ALLERGY PROPHYLAXIS
     Dates: start: 20120924, end: 20120924
  8. BENADRYL /00945501/ [Concomitant]
     Indication: ALLERGY PROPHYLAXIS
     Dates: start: 20121012, end: 20121012
  9. BENADRYL /00945501/ [Concomitant]
     Indication: ALLERGY PROPHYLAXIS
     Dates: start: 20121012, end: 20121012
  10. BENADRYL /00945501/ [Concomitant]
     Indication: ALLERGY PROPHYLAXIS
     Dates: start: 20121022, end: 20121022
  11. BENADRYL /00945501/ [Concomitant]
     Indication: ALLERGY PROPHYLAXIS
  12. BENADRYL /00945501/ [Concomitant]
     Indication: ALLERGY PROPHYLAXIS
     Dates: start: 20121012, end: 20121012
  13. TYLENOL /00020001/ [Concomitant]
     Indication: ALLERGY PROPHYLAXIS
  14. ULORIC [Concomitant]
     Indication: GOUT
     Dates: start: 201209, end: 201209
  15. TEMAZEPAM [Concomitant]
     Indication: PRODUCT USED FOR UNKNOWN INDICATION
     Route: 048
  16. ALLOPURINOL [Concomitant]
     Indication: PRODUCT USED FOR UNKNOWN INDICATION
     Dates: start: 20121101
  17. LOSARTAN [Concomitant]
     Indication: HYPERTENSION
  18. PREDNISONE [Concomitant]
     Indication: PRODUCT USED FOR UNKNOWN INDICATION
  19. ONDANSETRON [Concomitant]
     Indication: PRODUCT USED FOR UNKNOWN INDICATION

REACTIONS (3)
  - Infusion related reaction [Recovered/Resolved]
  - Therapeutic response decreased [Unknown]
  - Rash [Recovered/Resolved]
